FAERS Safety Report 8890850 (Version 1)
Quarter: 2012Q4

REPORT INFORMATION
  Report Type: 
  Country: GB (occurrence: GB)
  Receive Date: 20121107
  Receipt Date: 20121107
  Transmission Date: 20130627
  Serious: Yes (Hospitalization)
  Sender: FDA-Public Use
  Company Number: GB-ROCHE-1153092

PATIENT
  Age: 79 Year
  Sex: Male

DRUGS (9)
  1. CAPECITABINE [Suspect]
     Indication: COLON CANCER
     Route: 048
     Dates: start: 20121017, end: 20121020
  2. ATORVASTATIN [Concomitant]
  3. DILTIAZEM [Concomitant]
  4. LOSARTAN [Concomitant]
  5. MONTELUKAST [Concomitant]
  6. OILATUM EMOLLIENT [Concomitant]
  7. OMEPRAZOLE [Concomitant]
  8. QVAR [Concomitant]
  9. SALMETEROL [Concomitant]

REACTIONS (3)
  - Chest pain [Unknown]
  - Acute myocardial infarction [Recovering/Resolving]
  - Troponin I increased [Unknown]
